FAERS Safety Report 19109368 (Version 1)
Quarter: 2021Q2

REPORT INFORMATION
  Report Type: Spontaneous
  Country: GR (occurrence: GR)
  Receive Date: 20210409
  Receipt Date: 20210409
  Transmission Date: 20210717
  Serious: Yes (Hospitalization, Other)
  Sender: FDA-Public Use
  Company Number: GR-JNJFOC-20210402396

PATIENT
  Age: 41 Year
  Sex: Male

DRUGS (3)
  1. ALOPERIDIN DECANOAS [Suspect]
     Active Substance: HALOPERIDOL DECANOATE
     Indication: SCHIZOPHRENIA
     Dosage: UNK
     Route: 065
  2. LORAZEPAM. [Suspect]
     Active Substance: LORAZEPAM
     Indication: SCHIZOPHRENIA
     Dosage: UNK
     Route: 065
  3. CLOZAPINE. [Suspect]
     Active Substance: CLOZAPINE
     Indication: SCHIZOPHRENIA
     Dosage: 600 MG, DAILY
     Route: 065

REACTIONS (4)
  - Pneumonia [Unknown]
  - Inflammatory marker increased [Unknown]
  - Leukocytosis [Unknown]
  - Delusion [Unknown]
